FAERS Safety Report 6191036-1 (Version None)
Quarter: 2009Q2

REPORT INFORMATION
  Report Type: 
  Country: None (occurrence: None)
  Receive Date: 20090513
  Receipt Date: 20090430
  Transmission Date: 20091009
  Serious: Yes (Hospitalization)
  Sender: FDA-Public Use
  Company Number: 2009AL001963

PATIENT
  Age: 62 Year
  Sex: Female

DRUGS (2)
  1. DIGOXIN [Suspect]
     Dosage: PO
     Route: 048
     Dates: start: 20050101, end: 20090428
  2. VI-Q-TUSS SYRUP [Concomitant]

REACTIONS (5)
  - ANXIETY [None]
  - ECONOMIC PROBLEM [None]
  - INJURY [None]
  - MALAISE [None]
  - PAIN [None]
